FAERS Safety Report 7260293-2 (Version None)
Quarter: 2011Q1

REPORT INFORMATION
  Report Type: 
  Country: None (occurrence: None)
  Receive Date: 20110130
  Receipt Date: 20100909
  Transmission Date: 20110831
  Serious: No
  Sender: FDA-Public Use
  Company Number: US-ABBOTT-10P-163-0670262-00

PATIENT
  Age: 61 Year
  Sex: Female

DRUGS (6)
  1. HYDROCODONE [Concomitant]
     Indication: PRODUCT USED FOR UNKNOWN INDICATION
     Dosage: 1-2 TABS EVERY SIX HOURS, BUT NOW TAKING IT AS NEEDED
  2. MULTI-VITAMIN [Concomitant]
     Indication: PRODUCT USED FOR UNKNOWN INDICATION
  3. HUMIRA [Suspect]
     Indication: RHEUMATOID ARTHRITIS
     Dates: start: 20100826
  4. FISH OIL [Concomitant]
     Indication: PRODUCT USED FOR UNKNOWN INDICATION
  5. NEXIUM [Concomitant]
     Indication: GASTROOESOPHAGEAL REFLUX DISEASE
  6. HYDROCHLOROQUIN [Concomitant]
     Indication: ANTIINFLAMMATORY THERAPY

REACTIONS (5)
  - PYREXIA [None]
  - NASOPHARYNGITIS [None]
  - CHEST DISCOMFORT [None]
  - WHEEZING [None]
  - OROPHARYNGEAL PAIN [None]
